FAERS Safety Report 20309276 (Version 2)
Quarter: 2022Q1

REPORT INFORMATION
  Report Type: Spontaneous
  Country: US (occurrence: US)
  Receive Date: 20220107
  Receipt Date: 20220107
  Transmission Date: 20220423
  Serious: Yes (Death)
  Sender: FDA-Public Use
  Company Number: US-KARYOPHARM-2021KPT001654

PATIENT

DRUGS (12)
  1. XPOVIO [Suspect]
     Active Substance: SELINEXOR
     Indication: Diffuse large B-cell lymphoma
     Dosage: 60 MG, WEEKLY
     Route: 048
  2. AMITRIPTYLINE [Concomitant]
     Active Substance: AMITRIPTYLINE
  3. ATORVASTATIN [Concomitant]
     Active Substance: ATORVASTATIN
  4. BASAGLAR [Concomitant]
     Active Substance: INSULIN GLARGINE
  5. DILTIAZEM [Concomitant]
     Active Substance: DILTIAZEM
  6. GABAPENTIN [Concomitant]
     Active Substance: GABAPENTIN
  7. LOPRESSOR [Concomitant]
     Active Substance: METOPROLOL TARTRATE
  8. LOVENOX [Concomitant]
     Active Substance: ENOXAPARIN SODIUM
  9. MORPHINE [Concomitant]
     Active Substance: MORPHINE
  10. OXYCODONE [Concomitant]
     Active Substance: OXYCODONE
  11. TAMSULOSIN [Concomitant]
     Active Substance: TAMSULOSIN
  12. XANAX [Concomitant]
     Active Substance: ALPRAZOLAM

REACTIONS (1)
  - Death [Fatal]
